FAERS Safety Report 4779642-X (Version None)
Quarter: 2005Q3

REPORT INFORMATION
  Report Type: 
  Country: None (occurrence: None)
  Receive Date: 20050923
  Receipt Date: 20050916
  Transmission Date: 20060218
  Serious: Yes (Hospitalization, Other)
  Sender: FDA-Public Use
  Company Number: KII-2005-0018657

PATIENT
  Age: 20 Year
  Sex: Male

DRUGS (7)
  1. OXYCONTIN [Suspect]
     Indication: INTENTIONAL MISUSE
     Dosage: INHALATION
     Route: 055
  2. COCAINE (COCAINE) [Suspect]
     Indication: INTENTIONAL MISUSE
     Dosage: INHALATION
     Route: 055
  3. METAMFETAMINE (METAMFETAMINE) [Suspect]
     Indication: INTENTIONAL MISUSE
  4. ETHANOL (ETHANOL) [Suspect]
     Dosage: ORAL
     Route: 048
  5. BENZODIAZEPINE DERIVATES [Concomitant]
  6. MARIJUANA (CANNABIS) [Suspect]
  7. ACETAMINOPHEN [Suspect]

REACTIONS (7)
  - ALCOHOL USE [None]
  - BLOOD CREATINE PHOSPHOKINASE INCREASED [None]
  - BLOOD POTASSIUM DECREASED [None]
  - BLOOD PRESSURE SYSTOLIC INCREASED [None]
  - COMA [None]
  - ELECTROCARDIOGRAM ABNORMAL [None]
  - POLYSUBSTANCE ABUSE [None]
